FAERS Safety Report 15230176 (Version 1)
Quarter: 2018Q3

REPORT INFORMATION
  Report Type: Spontaneous
  Country: US (occurrence: US)
  Receive Date: 20180802
  Receipt Date: 20180802
  Transmission Date: 20181010
  Serious: Yes (Other)
  Sender: FDA-Public Use
  Company Number: US-ACCORD-066496

PATIENT
  Age: 70 Year
  Sex: Female
  Weight: 111.13 kg

DRUGS (10)
  1. KLOR?CON [Concomitant]
     Active Substance: POTASSIUM CHLORIDE
     Dosage: STRENGTH: 10 MG
     Dates: start: 1990
  2. BIOTIN [Concomitant]
     Active Substance: BIOTIN
     Dosage: STRENGTH: 10000MG
     Dates: start: 1990
  3. FUROSEMIDE. [Concomitant]
     Active Substance: FUROSEMIDE
     Dosage: STRENGTH: 40 MG
     Dates: start: 1990
  4. CALTRATE [Concomitant]
     Active Substance: CALCIUM CARBONATE
     Dosage: STRENGTH: 600 MG
     Dates: start: 1990
  5. ACETYLSALICYLIC ACID [Concomitant]
     Active Substance: ASPIRIN
     Dosage: STRENGTH: 81 MG
     Dates: start: 1990
  6. LETROZOLE. [Concomitant]
     Active Substance: LETROZOLE
     Dosage: STRENGTH: 2.5 MG
     Dates: start: 1990
  7. NEOSAR [Suspect]
     Active Substance: CYCLOPHOSPHAMIDE
     Indication: BREAST CANCER
     Dosage: NUMBER OF CYCLES: 04
  8. ATENOLOL/ATENOLOL HYDROCHLORIDE [Concomitant]
     Dosage: STRENGTH: 100 MG
     Dates: start: 1990
  9. DOCETAXEL ACCORD [Suspect]
     Active Substance: DOCETAXEL
     Indication: BREAST CANCER
     Dosage: NUMBER OF CYCLES: 04??DOSE: 164/162MG
     Dates: start: 20141229, end: 20150302
  10. SIMVASTATIN. [Concomitant]
     Active Substance: SIMVASTATIN
     Dosage: STRENGTH: 40 MG
     Dates: start: 1990

REACTIONS (1)
  - Alopecia [Not Recovered/Not Resolved]

NARRATIVE: CASE EVENT DATE: 201509
